FAERS Safety Report 8594581-4 (Version None)
Quarter: 2012Q3

REPORT INFORMATION
  Report Type: 
  Country: None (occurrence: None)
  Receive Date: 20120815
  Receipt Date: 20120807
  Transmission Date: 20120928
  Serious: Yes (Congenital Anomaly)
  Sender: FDA-Public Use
  Company Number: US-ELI_LILLY_AND_COMPANY-US201205007616

PATIENT

DRUGS (2)
  1. PROZAC [Suspect]
     Dosage: UNK, UNKNOWN
  2. PROZAC [Suspect]
     Dosage: UNK, UNKNOWN

REACTIONS (4)
  - TALIPES [None]
  - FOETAL EXPOSURE DURING PREGNANCY [None]
  - CLEFT LIP AND PALATE [None]
  - ADVERSE EVENT [None]
